FAERS Safety Report 4549993-2 (Version None)
Quarter: 2005Q1

REPORT INFORMATION
  Report Type: 
  Country: None (occurrence: None)
  Receive Date: 20050110
  Receipt Date: 20050105
  Transmission Date: 20050727
  Serious: Yes (Hospitalization)
  Sender: FDA-Public Use
  Company Number: SP00128

PATIENT
  Sex: Female
  Weight: 103.4201 kg

DRUGS (3)
  1. COLAZAL [Suspect]
     Indication: COLITIS ULCERATIVE
     Dosage: 2.25 G/TID
     Dates: start: 20031219, end: 20031223
  2. PREDNISONE [Concomitant]
  3. CONTRACEPTIVE [Concomitant]

REACTIONS (6)
  - CONDITION AGGRAVATED [None]
  - PROTEINURIA [None]
  - PYREXIA [None]
  - SKIN LESION [None]
  - SKIN ULCER [None]
  - VASCULITIS [None]
